FAERS Safety Report 18673358 (Version 1)
Quarter: 2020Q4

REPORT INFORMATION
  Report Type: Spontaneous
  Country: CN (occurrence: CN)
  Receive Date: 20201229
  Receipt Date: 20201229
  Transmission Date: 20210114
  Serious: Yes (Other)
  Sender: FDA-Public Use
  Company Number: CN-ROCHE-2739649

PATIENT
  Age: 44 Year
  Sex: Female

DRUGS (9)
  1. CAPECITABINE. [Suspect]
     Active Substance: CAPECITABINE
     Indication: INVASIVE BREAST CARCINOMA
     Route: 048
     Dates: end: 201911
  2. DOCETAXEL. [Concomitant]
     Active Substance: DOCETAXEL
     Indication: INVASIVE BREAST CARCINOMA
     Dosage: 6 CYCLES
     Dates: start: 20180827
  3. CISPLATIN. [Concomitant]
     Active Substance: CISPLATIN
     Indication: INVASIVE BREAST CARCINOMA
     Dosage: 6 CYCLES
     Dates: start: 20180827
  4. HERCEPTIN [Suspect]
     Active Substance: TRASTUZUMAB
     Indication: INVASIVE BREAST CARCINOMA
     Dosage: 6 CYCLES
     Route: 065
     Dates: start: 20180827
  5. HERCEPTIN [Suspect]
     Active Substance: TRASTUZUMAB
     Dosage: TARGETED THERAPY FOR 1 YEAR
     Route: 065
     Dates: end: 201908
  6. LAPATINIB [Concomitant]
     Active Substance: LAPATINIB
     Indication: INVASIVE BREAST CARCINOMA
  7. PERJETA [Suspect]
     Active Substance: PERTUZUMAB
     Indication: INVASIVE BREAST CARCINOMA
     Route: 065
     Dates: start: 20200804
  8. DOCETAXEL. [Concomitant]
     Active Substance: DOCETAXEL
     Dosage: DAY 1
     Dates: start: 20200804
  9. HERCEPTIN [Suspect]
     Active Substance: TRASTUZUMAB
     Dosage: DAY 1
     Route: 065
     Dates: start: 20200804

REACTIONS (4)
  - Pericardial effusion [Recovering/Resolving]
  - Pleural effusion [Recovering/Resolving]
  - Cardiomegaly [Recovering/Resolving]
  - Drug intolerance [Recovering/Resolving]

NARRATIVE: CASE EVENT DATE: 2019
